FAERS Safety Report 6344828-X (Version None)
Quarter: 2009Q3

REPORT INFORMATION
  Report Type: 
  Country: None (occurrence: None)
  Receive Date: 20090904
  Receipt Date: 20090825
  Transmission Date: 20100115
  Serious: Yes (Death, Other)
  Sender: FDA-Public Use
  Company Number: TPA2009A02438

PATIENT
  Age: 87 Year
  Sex: Female

DRUGS (2)
  1. ULORIC [Suspect]
     Indication: GOUT
     Dosage: 40 MG, 1 IN 1 D, PER ORAL
     Route: 048
     Dates: start: 20090101
  2. METHOTREXATE [Concomitant]

REACTIONS (4)
  - BONE MARROW TOXICITY [None]
  - DEHYDRATION [None]
  - DRUG LEVEL INCREASED [None]
  - STOMATITIS [None]
